FAERS Safety Report 20454554 (Version 1)
Quarter: 2022Q1

REPORT INFORMATION
  Report Type: Spontaneous
  Country: US (occurrence: None)
  Receive Date: 20220210
  Receipt Date: 20220210
  Transmission Date: 20220424
  Serious: Yes (Hospitalization)
  Sender: FDA-Public Use
  Company Number: None

PATIENT
  Age: 18 Year
  Sex: Female
  Weight: 66.3 kg

DRUGS (6)
  1. CYCLOPHOSPHAMIDE [Suspect]
     Active Substance: CYCLOPHOSPHAMIDE
     Dates: end: 20220111
  2. CYTARABINE [Suspect]
     Active Substance: CYTARABINE
     Dates: end: 20220121
  3. MERCAPTOPURINE [Suspect]
     Active Substance: MERCAPTOPURINE
     Dates: end: 20220124
  4. METHOTREXATE [Suspect]
     Active Substance: METHOTREXATE
     Dates: end: 20220201
  5. ONCASPAR [Suspect]
     Active Substance: PEGASPARGASE
     Dates: end: 20220125
  6. VINCRISTINE SULFATE [Suspect]
     Active Substance: VINCRISTINE SULFATE
     Dates: end: 20220201

REACTIONS (15)
  - Colitis [None]
  - Multiple organ dysfunction syndrome [None]
  - Pyrexia [None]
  - Tachycardia [None]
  - Hypotension [None]
  - Pleural effusion [None]
  - Lung infiltration [None]
  - Pulmonary oedema [None]
  - C-reactive protein increased [None]
  - Fibrin D dimer increased [None]
  - Hepatitis [None]
  - Encephalopathy [None]
  - Coagulation time prolonged [None]
  - Blood lactic acid increased [None]
  - Atelectasis [None]

NARRATIVE: CASE EVENT DATE: 20220208
